FAERS Safety Report 7186535-X (Version None)
Quarter: 2010Q4

REPORT INFORMATION
  Report Type: 
  Country: None (occurrence: None)
  Receive Date: 20101222
  Receipt Date: 20100622
  Transmission Date: 20110411
  Serious: No
  Sender: FDA-Public Use
  Company Number: US-AMGEN-KDL419864

PATIENT

DRUGS (8)
  1. ENBREL [Suspect]
     Indication: PRODUCT USED FOR UNKNOWN INDICATION
     Dosage: 50 MG, QWK
     Route: 058
  2. METHOTREXATE [Concomitant]
     Dosage: 2.5 MG, UNK
  3. CELECOXIB [Concomitant]
     Dosage: 200 MG, UNK
  4. FERROUS SULFATE [Concomitant]
     Dosage: 45 MG, UNK
  5. CALCIUM/VITAMIN D [Concomitant]
     Dosage: UNK UNK, UNK
  6. MULTI-VITAMINS [Concomitant]
     Dosage: UNK UNK, UNK
  7. FISH OIL [Concomitant]
     Dosage: UNK UNK, UNK
  8. NARATRIPTAN [Concomitant]
     Dosage: 1 MG, UNK

REACTIONS (3)
  - ERYTHEMA [None]
  - SKIN BURNING SENSATION [None]
  - SKIN IRRITATION [None]
